FAERS Safety Report 7408286-6 (Version None)
Quarter: 2011Q2

REPORT INFORMATION
  Report Type: 
  Country: None (occurrence: None)
  Receive Date: 20110412
  Receipt Date: 20110331
  Transmission Date: 20111010
  Serious: Yes (Hospitalization)
  Sender: FDA-Public Use
  Company Number: US-JNJFOC-20110401797

PATIENT
  Sex: Female
  Weight: 63.5 kg

DRUGS (2)
  1. FENTANYL-100 [Suspect]
     Indication: NEURALGIA
     Dosage: NDC: 0781-7242-55
     Route: 062
  2. FENTANYL-100 [Suspect]
     Indication: PAIN IN EXTREMITY
     Dosage: NDC: 0781-7242-55
     Route: 062

REACTIONS (3)
  - WRONG TECHNIQUE IN DRUG USAGE PROCESS [None]
  - MALAISE [None]
  - GALLBLADDER DISORDER [None]
